FAERS Safety Report 15391772 (Version 4)
Quarter: 2019Q3

REPORT INFORMATION
  Report Type: Spontaneous
  Country: CN (occurrence: CN)
  Receive Date: 20180917
  Receipt Date: 20190709
  Transmission Date: 20191004
  Serious: Yes (Life-Threatening, Other)
  Sender: FDA-Public Use
  Company Number: CN-CELGENEUS-CHN-20180903582

PATIENT
  Age: 74 Year
  Sex: Female

DRUGS (51)
  1. HYDROCHLOROTHIAZIDE. [Concomitant]
     Active Substance: HYDROCHLOROTHIAZIDE
     Indication: CARDIAC DISCOMFORT
     Dosage: 50 MG
     Route: 048
     Dates: start: 20180906, end: 20180926
  2. MEROPENEM. [Concomitant]
     Active Substance: MEROPENEM
     Dosage: 3000 MILLIGRAM
     Route: 041
     Dates: start: 20180831, end: 20180911
  3. G-CSF [Concomitant]
     Active Substance: GRANULOCYTE COLONY-STIMULATING FACTOR NOS
     Indication: ANAEMIA
     Dosage: 3000 MILLIGRAM
     Route: 059
     Dates: start: 20180901, end: 20180926
  4. REDUCED GLUTATHIONE [Concomitant]
     Dosage: 1.8 GRAM
     Route: 041
     Dates: start: 20181010, end: 20181019
  5. FAT SOLUBLE VITAMIN [Concomitant]
     Dosage: 1 BOTTLE
     Route: 041
     Dates: start: 20181010, end: 20181019
  6. FUROSEMIDE. [Concomitant]
     Active Substance: FUROSEMIDE
     Indication: CARDIAC FAILURE
     Dosage: 20 MILLIGRAM
     Route: 040
     Dates: start: 20180904, end: 20180904
  7. HYDROXYCARBAMIDE [Concomitant]
     Active Substance: HYDROXYUREA
     Indication: HYPERLEUKOCYTOSIS
     Dosage: 3 MILLIGRAM
     Route: 065
     Dates: start: 20180829, end: 20180830
  8. FEBUXOSTAT. [Concomitant]
     Active Substance: FEBUXOSTAT
     Indication: RENAL IMPAIRMENT
     Dosage: 40 MILLIGRAM
     Route: 048
     Dates: start: 20181010, end: 20181019
  9. SODIUM BICARBONATE. [Concomitant]
     Active Substance: SODIUM BICARBONATE
     Indication: PROPHYLAXIS
     Route: 041
     Dates: start: 20180829, end: 20180902
  10. ALANYL GLUTAMINE [Concomitant]
     Active Substance: ALANYL GLUTAMINE
     Indication: SUPPLEMENTATION THERAPY
     Route: 041
     Dates: start: 20180809, end: 20180827
  11. AMINO ACID [Concomitant]
     Active Substance: AMINO ACIDS
     Dosage: 12.5 GRAM
     Route: 041
     Dates: start: 20181012, end: 20181019
  12. CREATINE PHOSPHATE [Concomitant]
     Active Substance: PHOSPHOCREATINE
     Indication: CARDIAC DISORDER
     Dosage: 2  GRAM
     Route: 041
     Dates: start: 20180829, end: 20180926
  13. RABEPRAZOLE SODIUM. [Concomitant]
     Active Substance: RABEPRAZOLE SODIUM
     Indication: GASTRITIS PROPHYLAXIS
     Dosage: 20 MILLIGRAM
     Route: 041
     Dates: start: 20180829, end: 20180918
  14. RECOMBINANT HUMAN ERYTHROPOIETIN [Concomitant]
     Active Substance: ERYTHROPOIETIN
     Indication: ANAEMIA
     Dosage: 12000 IU (INTERNATIONAL UNIT)
     Route: 059
     Dates: start: 20180901, end: 20180926
  15. VENETOCLAX. [Concomitant]
     Active Substance: VENETOCLAX
     Dosage: 400 MILLIGRAM
     Route: 048
     Dates: start: 20180901
  16. AMINO ACID [Concomitant]
     Active Substance: AMINO ACIDS
     Dosage: 12.5 GRAM
     Route: 041
     Dates: start: 20180904, end: 20180926
  17. COENZYME COMPLEX [Concomitant]
     Active Substance: UNSPECIFIED INGREDIENT
     Indication: CARDIOVASCULAR EVENT PROPHYLAXIS
     Dosage: 0.3 MG
     Route: 041
     Dates: start: 20180829, end: 20180926
  18. HYDROCHLOROTHIAZIDE. [Concomitant]
     Active Substance: HYDROCHLOROTHIAZIDE
     Indication: DIURETIC THERAPY
     Dosage: 50 MG
     Route: 048
     Dates: start: 20180809, end: 20180827
  19. REDUCED GLUTATHIONE [Concomitant]
     Indication: PROPHYLAXIS
     Dosage: 1.8 GRAM
     Route: 041
     Dates: start: 20180829, end: 20180904
  20. POTASSIUM ASPARTATE [Concomitant]
     Active Substance: POTASSIUM ASPARTATE
     Route: 041
     Dates: start: 20181010, end: 20181019
  21. VENETOCLAX. [Concomitant]
     Active Substance: VENETOCLAX
     Indication: ACUTE MYELOID LEUKAEMIA
     Dosage: 100 MILLIGRAM
     Route: 048
     Dates: start: 20180830, end: 20180830
  22. VENETOCLAX. [Concomitant]
     Active Substance: VENETOCLAX
     Dosage: 200 MILLIGRAM
     Route: 048
     Dates: start: 20180831, end: 20180831
  23. COENZYME COMPLEX [Concomitant]
     Active Substance: UNSPECIFIED INGREDIENT
     Indication: HEPATIC FAILURE
     Dosage: 400 IU (INTERNATIONAL UNIT)
     Route: 041
     Dates: start: 20180809, end: 20180826
  24. HYDROCHLOROTHIAZIDE. [Concomitant]
     Active Substance: HYDROCHLOROTHIAZIDE
     Indication: CARDIAC FAILURE CONGESTIVE
     Dosage: 50 MILLIGRAM
     Route: 048
     Dates: start: 20181014, end: 20181019
  25. CALCIUM ASPARTATE [Concomitant]
     Active Substance: CALCIUM ASPARTATE
     Indication: MINERAL SUPPLEMENTATION
     Dosage: 2.25 GRAM
     Route: 041
     Dates: start: 20180814, end: 20180827
  26. THYMOPENTIN [Concomitant]
     Active Substance: THYMOPENTIN
     Indication: IMMUNE ENHANCEMENT THERAPY
     Dosage: 20 MILLIGRAM
     Route: 041
     Dates: start: 20180829, end: 20180904
  27. THYMOPENTIN [Concomitant]
     Active Substance: THYMOPENTIN
     Dosage: 20 MILLIGRAM
     Route: 041
     Dates: start: 20181010, end: 20181011
  28. NORMAL SALINE SOLUTION [Concomitant]
     Indication: PROPHYLAXIS
     Route: 041
     Dates: start: 20180829, end: 20180902
  29. AMINO ACID [Concomitant]
     Active Substance: AMINO ACIDS
     Indication: SUPPLEMENTATION THERAPY
     Dosage: 12.5 GRAM
     Route: 041
     Dates: start: 20180809, end: 20180827
  30. AZACITIDINE. [Suspect]
     Active Substance: AZACITIDINE
     Indication: ACUTE MYELOID LEUKAEMIA
     Dosage: 75 MILLIGRAM/SQ. METER
     Route: 058
     Dates: start: 20180830
  31. FEBUXOSTAT. [Concomitant]
     Active Substance: FEBUXOSTAT
     Indication: PROPHYLAXIS
     Route: 048
     Dates: start: 20180829, end: 20180918
  32. 5% DEXTROSE IN WATER [Concomitant]
     Indication: PROPHYLAXIS
     Route: 041
     Dates: start: 20180829, end: 20180902
  33. ALANYL GLUTAMINE [Concomitant]
     Active Substance: ALANYL GLUTAMINE
     Route: 041
     Dates: start: 20180904, end: 20180926
  34. COENZYME COMPLEX [Concomitant]
     Active Substance: UNSPECIFIED INGREDIENT
     Dosage: .4 MILLIGRAM
     Route: 041
     Dates: start: 20181010, end: 20181019
  35. CREATINE PHOSPHATE [Concomitant]
     Active Substance: PHOSPHOCREATINE
     Indication: PROPHYLAXIS
     Dosage: 2 GRAM
     Route: 041
     Dates: start: 20180809, end: 20180827
  36. CREATINE PHOSPHATE [Concomitant]
     Active Substance: PHOSPHOCREATINE
     Dosage: 2 GRAM
     Route: 041
     Dates: start: 20181010, end: 20181019
  37. PRIMAXIN IV [Concomitant]
     Active Substance: CILASTATIN SODIUM\IMIPENEM
     Indication: LUNG INFECTION
     Dosage: 400 IU (INTERNATIONAL UNIT)
     Route: 041
     Dates: start: 20180830, end: 20180830
  38. RECOMBINANT HUMAN ERYTHROPOIETIN [Concomitant]
     Active Substance: ERYTHROPOIETIN
     Dosage: 12000 IU (INTERNATIONAL UNIT)
     Route: 041
     Dates: start: 20181016, end: 20181019
  39. HIRUDOID [Concomitant]
     Active Substance: GLYCOSAMINOGLYCANS
     Indication: PHLEBITIS
     Route: 003
     Dates: start: 20180820, end: 20180919
  40. FAT SOLUBLE VITAMIN [Concomitant]
     Indication: NUTRITIONAL SUPPLEMENTATION
     Dosage: 1 BOX
     Route: 041
     Dates: start: 20180829, end: 20180918
  41. MEROPENEM. [Concomitant]
     Active Substance: MEROPENEM
     Indication: LUNG INFECTION
     Dosage: 3000 MILLIGRAM
     Route: 041
     Dates: start: 20180814, end: 20180827
  42. REDUCED GLUTATHIONE [Concomitant]
     Dosage: 2.4 GRAM
     Route: 041
     Dates: start: 20180919, end: 20180926
  43. SPIRONOLACTONE. [Concomitant]
     Active Substance: SPIRONOLACTONE
     Indication: CARDIAC DISCOMFORT
     Dosage: 40 MILLIGRAM
     Route: 048
     Dates: start: 20180906, end: 20180911
  44. RABEPRAZOLE SODIUM. [Concomitant]
     Active Substance: RABEPRAZOLE SODIUM
     Dosage: 20 MILLIGRAM
     Route: 041
     Dates: start: 20181010, end: 20181019
  45. CALCIUM ASPARTATE [Concomitant]
     Active Substance: CALCIUM ASPARTATE
     Indication: ELECTROLYTE SUBSTITUTION THERAPY
     Dosage: 4.5 GRAM
     Route: 041
     Dates: start: 20180904, end: 20180904
  46. CALCIUM ASPARTATE [Concomitant]
     Active Substance: CALCIUM ASPARTATE
     Dosage: 2.25 GRAM
     Route: 041
     Dates: start: 20180904, end: 20180926
  47. POTASSIUM ASPARTATE [Concomitant]
     Active Substance: POTASSIUM ASPARTATE
     Indication: NUTRITIONAL SUPPLEMENTATION
     Dosage: 10 MILLILITER
     Route: 041
     Dates: start: 20180829, end: 20180911
  48. REDUCED GLUTATHIONE [Concomitant]
     Dosage: 2.4 GRAM
     Route: 041
     Dates: start: 20181010, end: 20181019
  49. SPIRONOLACTONE. [Concomitant]
     Active Substance: SPIRONOLACTONE
     Indication: DIURETIC THERAPY
     Dosage: 40 MILLIGRAM
     Route: 048
     Dates: start: 20180819, end: 20180827
  50. SPIRONOLACTONE. [Concomitant]
     Active Substance: SPIRONOLACTONE
     Indication: CARDIAC FAILURE
     Dosage: 40 MILLIGRAM
     Route: 048
     Dates: start: 20181014, end: 20181019
  51. RECOMBINANT HUMAN GRANULOCYTE-MACROPHAGE COLONY STIMULATIN FACTOR [Concomitant]
     Indication: LEUKOPENIA
     Dosage: 300 MICROGRAM
     Route: 059
     Dates: start: 20180901, end: 20180920

REACTIONS (1)
  - Lung infection [Recovered/Resolved]

NARRATIVE: CASE EVENT DATE: 20180903
